FAERS Safety Report 25079107 (Version 1)
Quarter: 2025Q1

REPORT INFORMATION
  Report Type: Report from Study
  Country: ES (occurrence: ES)
  Receive Date: 20250314
  Receipt Date: 20250314
  Transmission Date: 20250408
  Serious: Yes (Other)
  Sender: AUROBINDO
  Company Number: ES-SUN PHARMACEUTICAL INDUSTRIES LTD-2021R1-286273

PATIENT

DRUGS (1)
  1. MELPHALAN [Suspect]
     Active Substance: MELPHALAN
     Indication: Retinoblastoma

REACTIONS (2)
  - Disease progression [Unknown]
  - Scar [Unknown]
